FAERS Safety Report 8632485 (Version 3)
Quarter: 2012Q4

REPORT INFORMATION
  Report Type: 
  Country: US (occurrence: US)
  Receive Date: 20120625
  Receipt Date: 20121126
  Transmission Date: 20130627
  Serious: Yes (Hospitalization, Disabling, Other)
  Sender: FDA-Public Use
  Company Number: US-BAYER-2012-061011

PATIENT
  Age: 23 Year
  Sex: Female
  Weight: 77.1 kg

DRUGS (8)
  1. YAZ [Suspect]
     Indication: ACNE
     Dosage: UNK
     Dates: start: 200402, end: 200809
  2. YAZ [Suspect]
     Indication: PREMENSTRUAL SYNDROME
  3. YAZ [Suspect]
     Indication: PREMENSTRUAL DYSPHORIC DISORDER
  4. YAZ [Suspect]
     Indication: CONTRACEPTION
  5. YASMIN [Suspect]
     Indication: ACNE
     Dosage: UNK
     Dates: start: 200402, end: 200809
  6. YASMIN [Suspect]
     Indication: PREMENSTRUAL SYNDROME
  7. YASMIN [Suspect]
     Indication: PREMENSTRUAL DYSPHORIC DISORDER
  8. VITAMIN C [Concomitant]
     Dosage: UNK

REACTIONS (12)
  - Cholecystitis [None]
  - Injury [None]
  - Pain [None]
  - Anxiety [None]
  - Emotional distress [None]
  - Pain [None]
  - Fear [None]
  - Post procedural complication [None]
  - Lipoma [None]
  - Premenstrual syndrome [None]
  - Premenstrual dysphoric disorder [None]
  - Cholelithiasis [None]
